FAERS Safety Report 6255556-3 (Version None)
Quarter: 2009Q2

REPORT INFORMATION
  Report Type: 
  Country: None (occurrence: None)
  Receive Date: 20090630
  Receipt Date: 20090608
  Transmission Date: 20091009
  Serious: Yes (Hospitalization)
  Sender: FDA-Public Use
  Company Number: 20090221

PATIENT
  Age: 24 Year
  Sex: Female

DRUGS (5)
  1. NEOSTIGMINE METHYLSULFATE INJECTION, USP1MG/ML [Suspect]
  2. SUCCINYLCHOLINE CHLORIDE [Suspect]
     Dosage: 100 MG
  3. ATRACURIUM [Concomitant]
  4. ATROPINE [Concomitant]
  5. THIOPENTAL SODIUM [Concomitant]

REACTIONS (7)
  - BLOOD PH DECREASED [None]
  - CAESAREAN SECTION [None]
  - DRUG EXPOSURE DURING PREGNANCY [None]
  - MUSCLE SPASMS [None]
  - MYOTONIA CONGENITA [None]
  - OXYGEN SATURATION DECREASED [None]
  - PCO2 INCREASED [None]
